APPROVED DRUG PRODUCT: ALBUTEROL SULFATE
Active Ingredient: ALBUTEROL SULFATE
Strength: EQ 4MG BASE
Dosage Form/Route: TABLET;ORAL
Application: A072151 | Product #002
Applicant: CHARTWELL RX SCIENCES LLC
Approved: Dec 5, 1989 | RLD: No | RS: No | Type: DISCN